FAERS Safety Report 13569617 (Version 1)
Quarter: 2017Q2

REPORT INFORMATION
  Report Type: Spontaneous
  Country: CA (occurrence: CA)
  Receive Date: 20170522
  Receipt Date: 20170522
  Transmission Date: 20170830
  Serious: Yes (Other)
  Sender: FDA-Public Use
  Company Number: CA-SA-2017SA085912

PATIENT
  Age: 62 Year
  Sex: Female

DRUGS (10)
  1. CICLOSPORIN [Suspect]
     Active Substance: CYCLOSPORINE
     Route: 065
  2. METHOTREXATE. [Suspect]
     Active Substance: METHOTREXATE
     Route: 065
  3. SODIUM AUROTHIOMALATE [Suspect]
     Active Substance: GOLD SODIUM THIOMALATE
     Dosage: FORM: SOLUTION INTRAMUSCULAR
     Route: 030
  4. ORENCIA [Suspect]
     Active Substance: ABATACEPT
     Route: 042
  5. ARAVA [Suspect]
     Active Substance: LEFLUNOMIDE
     Route: 065
  6. RITUXAN [Suspect]
     Active Substance: RITUXIMAB
     Dosage: FORM: POWDER FOR SOLUTION INTRAVENOUS
     Route: 042
  7. ENBREL [Suspect]
     Active Substance: ETANERCEPT
     Dosage: FORM: SOLUTION SUBCUTANEOUS
     Route: 058
  8. REMICADE [Suspect]
     Active Substance: INFLIXIMAB
     Dosage: FORM: POWDER FOR SOLUTION INTRAVENOUS
     Route: 042
  9. ACTEMRA [Suspect]
     Active Substance: TOCILIZUMAB
     Route: 065
  10. IMURAN [Suspect]
     Active Substance: AZATHIOPRINE
     Route: 065

REACTIONS (7)
  - Rheumatoid arthritis [Unknown]
  - Impaired gastric emptying [Unknown]
  - Drug hypersensitivity [Unknown]
  - Demyelination [Unknown]
  - Diabetes mellitus [Unknown]
  - Renal impairment [Unknown]
  - Therapeutic response decreased [Unknown]
